FAERS Safety Report 21557475 (Version 1)
Quarter: 2022Q4

REPORT INFORMATION
  Report Type: Spontaneous
  Country: US (occurrence: US)
  Receive Date: 20221105
  Receipt Date: 20221105
  Transmission Date: 20230113
  Serious: Yes (Life-Threatening, Hospitalization, Other)
  Sender: FDA-Public Use
  Company Number: US-MLMSERVICE-20221018-3867871-1

PATIENT
  Age: 2 Day
  Sex: Male

DRUGS (1)
  1. ONDANSETRON HYDROCHLORIDE [Suspect]
     Active Substance: ONDANSETRON HYDROCHLORIDE
     Indication: Product used for unknown indication
     Route: 030

REACTIONS (6)
  - Injection site oedema [Recovered/Resolved]
  - Incorrect dose administered [Unknown]
  - Bradycardia [Recovered/Resolved]
  - Penile oedema [Recovered/Resolved]
  - Accidental exposure to product [Unknown]
  - Electrocardiogram QT prolonged [Recovered/Resolved]
